FAERS Safety Report 24106714 (Version 1)
Quarter: 2024Q3

REPORT INFORMATION
  Report Type: Spontaneous
  Country: US (occurrence: US)
  Receive Date: 20240717
  Receipt Date: 20240717
  Transmission Date: 20241017
  Serious: Yes (Other)
  Sender: ELI LILLY AND CO
  Company Number: US-ELI_LILLY_AND_COMPANY-US202407006598

PATIENT
  Age: 62 Year
  Sex: Female

DRUGS (1)
  1. BASAGLAR [Suspect]
     Active Substance: INSULIN GLARGINE
     Dosage: UNK, UNKNOWN
     Route: 058

REACTIONS (2)
  - Retinopathy [Not Recovered/Not Resolved]
  - Injection site haemorrhage [Unknown]

NARRATIVE: CASE EVENT DATE: 20240708
